FAERS Safety Report 7642590-1 (Version None)
Quarter: 2011Q3

REPORT INFORMATION
  Report Type: 
  Country: None (occurrence: None)
  Receive Date: 20110728
  Receipt Date: 20110725
  Transmission Date: 20111222
  Serious: Yes (Death, Hospitalization, Disabling, Other)
  Sender: FDA-Public Use
  Company Number: US-TEVA-292767USA

PATIENT
  Sex: Male

DRUGS (4)
  1. METOCLOPRAMIDE HCL [Suspect]
     Indication: ABDOMINAL DISTENSION
  2. METOCLOPRAMIDE HCL [Suspect]
     Indication: DYSPEPSIA
  3. METOCLOPRAMIDE HCL [Suspect]
  4. METOCLOPRAMIDE HCL [Suspect]

REACTIONS (4)
  - TARDIVE DYSKINESIA [None]
  - DYSTONIA [None]
  - NERVOUS SYSTEM DISORDER [None]
  - EXTRAPYRAMIDAL DISORDER [None]
